FAERS Safety Report 12841113 (Version 2)
Quarter: 2016Q4

REPORT INFORMATION
  Report Type: Report from Study
  Country: DE (occurrence: DE)
  Receive Date: 20161012
  Receipt Date: 20161103
  Transmission Date: 20170207
  Serious: Yes (Other)
  Sender: FDA-Public Use
  Company Number: DE-BIOGEN-2016BI00302171

PATIENT
  Age: 47 Year
  Sex: Male
  Weight: 77 kg

DRUGS (2)
  1. VIGIL [Concomitant]
     Active Substance: MODAFINIL
     Indication: FATIGUE
     Route: 048
     Dates: start: 2010
  2. TYSABRI [Suspect]
     Active Substance: NATALIZUMAB
     Indication: MULTIPLE SCLEROSIS
     Route: 042
     Dates: start: 20060817

REACTIONS (3)
  - Sepsis [Not Recovered/Not Resolved]
  - Pain [Unknown]
  - Animal bite [Recovered/Resolved]

NARRATIVE: CASE EVENT DATE: 20160928
